FAERS Safety Report 14260020 (Version 5)
Quarter: 2018Q4

REPORT INFORMATION
  Report Type: Spontaneous
  Country: US (occurrence: US)
  Receive Date: 20171207
  Receipt Date: 20181203
  Transmission Date: 20190204
  Serious: No
  Sender: FDA-Public Use
  Company Number: US-VIFOR (INTERNATIONAL) INC.-VIT-2016-07680

PATIENT
  Age: 67 Year
  Sex: Male
  Weight: 95.25 kg

DRUGS (21)
  1. AMBIEN [Concomitant]
     Active Substance: ZOLPIDEM TARTRATE
  2. PERCOCET [Concomitant]
     Active Substance: ACETAMINOPHEN\OXYCODONE HYDROCHLORIDE
  3. FUROSEMIDE. [Concomitant]
     Active Substance: FUROSEMIDE
  4. VELTASSA [Suspect]
     Active Substance: PATIROMER
     Indication: HYPERKALAEMIA
     Route: 048
     Dates: start: 20160503
  5. VELTASSA [Suspect]
     Active Substance: PATIROMER
     Dates: start: 2018
  6. VITAMIN D2 [Concomitant]
     Active Substance: ERGOCALCIFEROL
  7. TACROLIMUS. [Concomitant]
     Active Substance: TACROLIMUS
  8. VELTASSA [Suspect]
     Active Substance: PATIROMER
     Route: 048
  9. ALLOPURINOL. [Concomitant]
     Active Substance: ALLOPURINOL
  10. PROGRAF [Concomitant]
     Active Substance: TACROLIMUS\TACROLIMUS ANHYDROUS
  11. VELTASSA [Suspect]
     Active Substance: PATIROMER
     Dates: start: 2016
  12. NIFEDIPINE. [Concomitant]
     Active Substance: NIFEDIPINE
  13. GLIPIZIDE. [Concomitant]
     Active Substance: GLIPIZIDE
  14. DULOXETINE HCL [Concomitant]
     Active Substance: DULOXETINE HYDROCHLORIDE
  15. LIPITOR [Concomitant]
     Active Substance: ATORVASTATIN CALCIUM
  16. COREG [Concomitant]
     Active Substance: CARVEDILOL
  17. SENSIPAR [Concomitant]
     Active Substance: CINACALCET HYDROCHLORIDE
  18. IMURAN [Concomitant]
     Active Substance: AZATHIOPRINE
  19. ATORVASTATIN CALCIUM. [Concomitant]
     Active Substance: ATORVASTATIN CALCIUM
  20. COLCRYS [Concomitant]
     Active Substance: COLCHICINE
  21. ASPIRIN. [Concomitant]
     Active Substance: ASPIRIN

REACTIONS (3)
  - Off label use [Unknown]
  - Constipation [Recovered/Resolved]
  - Fatigue [Not Recovered/Not Resolved]

NARRATIVE: CASE EVENT DATE: 2016
